FAERS Safety Report 4930245-3 (Version None)
Quarter: 2006Q1

REPORT INFORMATION
  Report Type: 
  Country: None (occurrence: None)
  Receive Date: 20060302
  Receipt Date: 20060119
  Transmission Date: 20060701
  Serious: Yes (Other)
  Sender: FDA-Public Use
  Company Number: PHBS2006JP01291

PATIENT
  Sex: Female
  Weight: 45 kg

DRUGS (4)
  1. NEORAL [Suspect]
     Indication: DERMATOMYOSITIS
     Dosage: 100 MG/D
     Route: 048
     Dates: start: 20060118
  2. PREDNISOLONE [Concomitant]
     Indication: DERMATOMYOSITIS
     Dosage: 25 MG/D
     Route: 048
  3. PRORENAL [Concomitant]
     Dosage: 15 UG/DAY
     Route: 048
  4. COTRIM [Concomitant]
     Dosage: 4 G/DAY
     Route: 048

REACTIONS (4)
  - CHEST DISCOMFORT [None]
  - DISEASE PROGRESSION [None]
  - PALPITATIONS [None]
  - TACHYCARDIA [None]
